FAERS Safety Report 14123412 (Version 1)
Quarter: 2017Q4

REPORT INFORMATION
  Report Type: Spontaneous
  Country: US (occurrence: US)
  Receive Date: 20171025
  Receipt Date: 20171025
  Transmission Date: 20180321
  Serious: Yes (Disabling, Other)
  Sender: FDA-Public Use
  Company Number: None

PATIENT
  Age: 34 Year
  Sex: Female
  Weight: 61.65 kg

DRUGS (13)
  1. NORETHINDRONE ACETATE. [Concomitant]
     Active Substance: NORETHINDRONE ACETATE
  2. PERCOCET [Concomitant]
     Active Substance: ACETAMINOPHEN\OXYCODONE HYDROCHLORIDE
  3. SUMMATRIPTAN [Concomitant]
  4. ADVIL [Concomitant]
     Active Substance: IBUPROFEN
  5. KLONOPHIN [Concomitant]
  6. VITAMIN B12 [Concomitant]
     Active Substance: CYANOCOBALAMIN
  7. FIBER SUPPLEMENT [Concomitant]
  8. LUPRON DEPOT [Suspect]
     Active Substance: LEUPROLIDE ACETATE
     Indication: ENDOMETRIOSIS
     Route: 030
  9. PAXIL CR [Concomitant]
     Active Substance: PAROXETINE HYDROCHLORIDE
  10. BIOTIN [Concomitant]
     Active Substance: BIOTIN
  11. VITAMIN A [Concomitant]
     Active Substance: VITAMIN A
  12. ZOFRAN [Concomitant]
     Active Substance: ONDANSETRON HYDROCHLORIDE
  13. VITAMIN E [Concomitant]
     Active Substance: .ALPHA.-TOCOPHEROL

REACTIONS (25)
  - Loss of personal independence in daily activities [None]
  - Vomiting [None]
  - Impaired work ability [None]
  - Suicidal ideation [None]
  - Self-injurious ideation [None]
  - Abdominal pain [None]
  - Groin pain [None]
  - Pain in extremity [None]
  - Nausea [None]
  - Dehydration [None]
  - Influenza [None]
  - Disturbance in attention [None]
  - Feeling abnormal [None]
  - Hair disorder [None]
  - Fatigue [None]
  - Mood swings [None]
  - Mobility decreased [None]
  - Drug ineffective [None]
  - Panic attack [None]
  - Emotional disorder [None]
  - Skin disorder [None]
  - Back pain [None]
  - Discomfort [None]
  - Depression [None]
  - Vulvovaginal dryness [None]

NARRATIVE: CASE EVENT DATE: 20171022
